FAERS Safety Report 8559099-3 (Version None)
Quarter: 2012Q3

REPORT INFORMATION
  Report Type: 
  Country: None (occurrence: None)
  Receive Date: 20120802
  Receipt Date: 20120710
  Transmission Date: 20120928
  Serious: No
  Sender: FDA-Public Use
  Company Number: US-BIOGENIDEC-2012BI024692

PATIENT
  Age: 52 Year
  Sex: Female

DRUGS (2)
  1. AVONEX [Suspect]
     Indication: MULTIPLE SCLEROSIS
     Route: 030
     Dates: start: 20120611, end: 20120702
  2. AVONEX [Suspect]
     Route: 030
     Dates: start: 20120709

REACTIONS (2)
  - INJECTION SITE PAIN [None]
  - DRUG DOSE OMISSION [None]
